FAERS Safety Report 5120547-2 (Version None)
Quarter: 2006Q4

REPORT INFORMATION
  Report Type: 
  Country: None (occurrence: None)
  Receive Date: 20061004
  Receipt Date: 20060818
  Transmission Date: 20070319
  Serious: Yes (Hospitalization, Other)
  Sender: FDA-Public Use
  Company Number: US-BRISTOL-MYERS SQUIBB COMPANY-13482559

PATIENT
  Age: 46 Year
  Sex: Male
  Weight: 51 kg

DRUGS (14)
  1. REYATAZ [Suspect]
     Indication: HIV INFECTION
     Route: 048
     Dates: start: 20050512, end: 20060421
  2. RITONAVIR [Concomitant]
     Dates: start: 20040401, end: 20050106
  3. RESCRIPTOR [Concomitant]
     Dates: start: 20050106, end: 20050512
  4. PLAVIX [Concomitant]
  5. LASIX [Concomitant]
  6. AVANDIA [Concomitant]
  7. METFORMIN HCL [Concomitant]
  8. ZIAGEN [Concomitant]
  9. EMTRIVA [Concomitant]
  10. ASPIRIN [Concomitant]
  11. FLONASE [Concomitant]
  12. ZYRTEC [Concomitant]
  13. ZETIA [Concomitant]
  14. ATENOLOL [Concomitant]

REACTIONS (3)
  - CONDUCTION DISORDER [None]
  - PALPITATIONS [None]
  - PERICARDIAL EFFUSION [None]
